FAERS Safety Report 8241502-X (Version None)
Quarter: 2012Q1

REPORT INFORMATION
  Report Type: 
  Country: None (occurrence: None)
  Receive Date: 20120328
  Receipt Date: 20110329
  Transmission Date: 20120608
  Serious: Yes (Other)
  Sender: FDA-Public Use
  Company Number: US-COVIDIEN/TYCO HEALTHCARE/MALLINCKRODT-T201100678

PATIENT

DRUGS (1)
  1. METHADOSE [Suspect]
     Dosage: UNK

REACTIONS (1)
  - OVERDOSE [None]
